FAERS Safety Report 18092807 (Version 1)
Quarter: 2020Q3

REPORT INFORMATION
  Report Type: Spontaneous
  Country: US (occurrence: US)
  Receive Date: 20200730
  Receipt Date: 20200730
  Transmission Date: 20201103
  Serious: No
  Sender: FDA-Public Use
  Company Number: US-INCYTE CORPORATION-2020IN007204

PATIENT

DRUGS (1)
  1. JAKAFI [Suspect]
     Active Substance: RUXOLITINIB
     Dosage: 10 MILLIGRAM, BID
     Route: 048
     Dates: start: 20200622, end: 20200717

REACTIONS (7)
  - Ageusia [Recovering/Resolving]
  - Libido decreased [Recovering/Resolving]
  - Nausea [Recovering/Resolving]
  - Weight increased [Recovering/Resolving]
  - Rash [Recovering/Resolving]
  - Fatigue [Recovering/Resolving]
  - Contusion [Recovering/Resolving]

NARRATIVE: CASE EVENT DATE: 20200625
